FAERS Safety Report 9056388 (Version 2)
Quarter: 2013Q4

REPORT INFORMATION
  Report Type: Report from Study
  Country: DE (occurrence: DE)
  Receive Date: 20130204
  Receipt Date: 20131119
  Transmission Date: 20140711
  Serious: Yes (Hospitalization, Other)
  Sender: FDA-Public Use
  Company Number: PHHO2013DE001951

PATIENT
  Age: 72 Year
  Sex: Female

DRUGS (2)
  1. EVEROLIMUS [Suspect]
     Indication: BREAST CANCER
     Dosage: 10 MG, QD
     Dates: start: 201208
  2. EVEROLIMUS [Suspect]
     Dosage: 10 MG, QD

REACTIONS (3)
  - Bone marrow disorder [Recovered/Resolved]
  - Pneumonia [Recovered/Resolved]
  - Encephalitis [Recovered/Resolved]
